FAERS Safety Report 5981544-8 (Version None)
Quarter: 2008Q4

REPORT INFORMATION
  Report Type: 
  Country: None (occurrence: None)
  Receive Date: 20081202
  Receipt Date: 20081117
  Transmission Date: 20090506
  Serious: Yes (Other)
  Sender: FDA-Public Use
  Company Number: DSU-2008-01991

PATIENT
  Age: 63 Year
  Sex: Male
  Weight: 105.2345 kg

DRUGS (8)
  1. BENICAR HCT [Suspect]
     Indication: HYPERTENSION
     Dosage: 40/25 MG (QD) PER ORAL
     Route: 048
     Dates: start: 20080101
  2. BENICAR [Suspect]
     Indication: HYPERTENSION
     Dosage: 40 MG (40 MG, QD) PER ORAL
     Route: 048
     Dates: start: 20081115, end: 20081115
  3. CLONIDINE [Concomitant]
  4. TOPROLOL XL(METOPROLOL SUCCINATE) [Concomitant]
  5. AMIODARONE HCL [Concomitant]
  6. DIGOXIN [Concomitant]
  7. WARFARIN SODIUM [Concomitant]
  8. METFORMIN HCL [Concomitant]

REACTIONS (3)
  - BLOOD PRESSURE FLUCTUATION [None]
  - BLOOD PRESSURE SYSTOLIC INCREASED [None]
  - EXPIRED DRUG ADMINISTERED [None]
